FAERS Safety Report 17190951 (Version 2)
Quarter: 2020Q1

REPORT INFORMATION
  Report Type: Spontaneous
  Country: DE (occurrence: DE)
  Receive Date: 20191223
  Receipt Date: 20200108
  Transmission Date: 20200409
  Serious: Yes (Death, Other)
  Sender: FDA-Public Use
  Company Number: ALC2019DE002666

PATIENT

DRUGS (8)
  1. ATROPINE. [Suspect]
     Active Substance: ATROPINE
     Indication: FOETAL EXPOSURE DURING PREGNANCY
     Route: 064
  2. PARACETAMOL [Suspect]
     Active Substance: ACETAMINOPHEN
     Indication: FOETAL EXPOSURE DURING PREGNANCY
     Dosage: 500 MG
     Route: 064
  3. AMPICILLIN [Suspect]
     Active Substance: AMPICILLIN
     Indication: FOETAL EXPOSURE DURING PREGNANCY
     Route: 064
  4. SEVOFLURANE. [Suspect]
     Active Substance: SEVOFLURANE
     Indication: FOETAL EXPOSURE DURING PREGNANCY
     Route: 064
  5. ALFENTANIL. [Suspect]
     Active Substance: ALFENTANIL
     Indication: FOETAL EXPOSURE DURING PREGNANCY
     Route: 064
  6. ROCURONIUM [Suspect]
     Active Substance: ROCURONIUM BROMIDE
     Indication: FOETAL EXPOSURE DURING PREGNANCY
     Route: 064
  7. METAMIZOLE [Suspect]
     Active Substance: METAMIZOLE
     Indication: FOETAL EXPOSURE DURING PREGNANCY
     Route: 064
  8. SULBACTAM [Suspect]
     Active Substance: SULBACTAM
     Indication: FOETAL EXPOSURE DURING PREGNANCY
     Route: 064

REACTIONS (3)
  - Stillbirth [Fatal]
  - Gastroschisis [Unknown]
  - Foetal exposure during pregnancy [Unknown]
